FAERS Safety Report 6882714-7 (Version None)
Quarter: 2010Q3

REPORT INFORMATION
  Report Type: 
  Country: None (occurrence: None)
  Receive Date: 20100729
  Receipt Date: 20100609
  Transmission Date: 20110219
  Serious: No
  Sender: FDA-Public Use
  Company Number: US-TEVA-238820USA

PATIENT
  Sex: Male
  Weight: 93.07 kg

DRUGS (7)
  1. AZILECT [Suspect]
     Indication: PARKINSON'S DISEASE
     Route: 048
     Dates: start: 20100201
  2. LEVOTHYROXINE SODIUM [Suspect]
     Indication: HYPOTHYROIDISM
     Dates: start: 20080101
  3. SINEMET [Suspect]
     Indication: PARKINSON'S DISEASE
     Dosage: 25/100 MG
     Route: 048
     Dates: start: 20100201
  4. ROSUVASTATIN [Concomitant]
     Indication: BLOOD CHOLESTEROL INCREASED
     Route: 048
  5. ACETYLSALICYLIC ACID SRT [Concomitant]
     Route: 048
  6. FISH OIL [Concomitant]
     Indication: BLOOD CHOLESTEROL INCREASED
  7. KAPSOVIT (ERGOCALCEIFEROL, ASCORBIC ACID, THIAMINE HYDROCHLORIDE, RETI [Concomitant]
     Indication: MEDICAL DIET
     Route: 048

REACTIONS (1)
  - FATIGUE [None]
